FAERS Safety Report 5028704-0 (Version None)
Quarter: 2006Q2

REPORT INFORMATION
  Report Type: 
  Country: None (occurrence: None)
  Receive Date: 20060501
  Receipt Date: 20051205
  Transmission Date: 20061013
  Serious: No
  Sender: FDA-Public Use
  Company Number: 2005PV005339

PATIENT
  Age: 74 Year
  Sex: Female
  Weight: 74.3899 kg

DRUGS (3)
  1. SYMLIN [Suspect]
     Indication: DIABETES MELLITUS NON-INSULIN-DEPENDENT
     Dosage: 120 MCG;TID;SC
     Route: 058
     Dates: start: 20051001, end: 20051205
  2. N INSULIN [Concomitant]
  3. HUMALOG [Concomitant]

REACTIONS (5)
  - COUGH [None]
  - DYSPHONIA [None]
  - INCREASED UPPER AIRWAY SECRETION [None]
  - NECK INJURY [None]
  - ROAD TRAFFIC ACCIDENT [None]
